FAERS Safety Report 9369672 (Version 1)
Quarter: 2013Q2

REPORT INFORMATION
  Report Type: Spontaneous
  Country: US (occurrence: None)
  Receive Date: 20130625
  Receipt Date: 20130625
  Transmission Date: 20140414
  Serious: Yes (Other)
  Sender: FDA-Public Use
  Company Number: None

PATIENT
  Age: 54 Year
  Sex: Female
  Weight: 113.4 kg

DRUGS (1)
  1. MONTELUKAST [Suspect]
     Indication: ALLERGIC SINUSITIS
     Route: 048
     Dates: start: 20130507, end: 20130531

REACTIONS (18)
  - Nightmare [None]
  - Hyperhidrosis [None]
  - Tremor [None]
  - Crying [None]
  - Emotional disorder [None]
  - Insomnia [None]
  - Tremor [None]
  - Confusional state [None]
  - Disorientation [None]
  - Hypoaesthesia [None]
  - Night sweats [None]
  - Vision blurred [None]
  - Arthralgia [None]
  - Anxiety [None]
  - Irritability [None]
  - Toothache [None]
  - Lethargy [None]
  - Alopecia [None]
